FAERS Safety Report 6640320-3 (Version None)
Quarter: 2010Q1

REPORT INFORMATION
  Report Type: 
  Country: None (occurrence: None)
  Receive Date: 20100318
  Receipt Date: 20100309
  Transmission Date: 20100710
  Serious: Yes (Death, Other)
  Sender: FDA-Public Use
  Company Number: GB-ROCHE-691012

PATIENT
  Age: 46 Year
  Sex: Male

DRUGS (10)
  1. NAPROXEN [Suspect]
     Indication: ANALGESIC THERAPY
     Route: 065
  2. MOVICOL [Suspect]
     Indication: CONSTIPATION
     Route: 065
  3. CARBOPLATIN [Suspect]
     Indication: METASTATIC MALIGNANT MELANOMA
     Route: 065
  4. DEXAMETASONE [Suspect]
     Dosage: A FEW MONTHS
     Route: 065
  5. MORPHINE SULPHATE SR [Concomitant]
     Indication: ANALGESIC THERAPY
  6. WARFARIN SODIUM [Concomitant]
     Indication: PULMONARY EMBOLISM
  7. DIAMORPHINE [Concomitant]
     Indication: ANALGESIC THERAPY
     Dosage: DOSE 100 MG, DURATION 1 DAY
     Route: 058
  8. MIDAZOLAM HCL [Concomitant]
     Indication: ANALGESIC THERAPY
     Dosage: DOSE 10 MG, DURATION 1 DAY.
     Route: 058
  9. KETAMINE HCL [Concomitant]
     Indication: ANALGESIC THERAPY
  10. HYDROCORTISONE [Concomitant]

REACTIONS (3)
  - HYPERKALAEMIA [None]
  - HYPONATRAEMIA [None]
  - TUMOUR HAEMORRHAGE [None]
